FAERS Safety Report 8617922-8 (Version None)
Quarter: 2012Q3

REPORT INFORMATION
  Report Type: 
  Country: None (occurrence: None)
  Receive Date: 20120824
  Receipt Date: 20120320
  Transmission Date: 20120928
  Serious: No
  Sender: FDA-Public Use
  Company Number: US-ASTRAZENECA-2012SE19277

PATIENT
  Age: 52 Year
  Sex: Male

DRUGS (5)
  1. ALEVE [Concomitant]
  2. ALBUTEROL [Concomitant]
  3. DAYPRO [Concomitant]
  4. PROVENTIL [Concomitant]
  5. SYMBICORT [Suspect]
     Route: 055

REACTIONS (1)
  - DYSPEPSIA [None]
